FAERS Safety Report 9898446 (Version 2)
Quarter: 2014Q1

REPORT INFORMATION
  Report Type: Spontaneous
  Country: US (occurrence: US)
  Receive Date: 20140214
  Receipt Date: 20140214
  Transmission Date: 20141002
  Serious: No
  Sender: FDA-Public Use
  Company Number: US-TEVA-413928USA

PATIENT
  Sex: Female

DRUGS (1)
  1. CROMOGLICIC ACID [Suspect]

REACTIONS (19)
  - Respiratory tract irritation [Recovered/Resolved]
  - Exposure to toxic agent [Unknown]
  - Fungal skin infection [Recovered/Resolved]
  - Erythema [Unknown]
  - Excoriation [Unknown]
  - Lip blister [Unknown]
  - Acne [Unknown]
  - Lip swelling [Recovering/Resolving]
  - Cheilitis [Unknown]
  - Lip exfoliation [Recovering/Resolving]
  - Pain [Unknown]
  - Myalgia [Recovering/Resolving]
  - Nasal congestion [Recovered/Resolved]
  - Sneezing [Recovered/Resolved]
  - Rhinorrhoea [Recovering/Resolving]
  - Chest pain [Unknown]
  - Headache [Not Recovered/Not Resolved]
  - Nausea [Not Recovered/Not Resolved]
  - Drug dose omission [Unknown]
